FAERS Safety Report 12167203 (Version 1)
Quarter: 2016Q1

REPORT INFORMATION
  Report Type: Spontaneous
  Country: US (occurrence: US)
  Receive Date: 20160310
  Receipt Date: 20160310
  Transmission Date: 20160526
  Serious: No
  Sender: FDA-Public Use
  Company Number: US-009507513-1603USA000104

PATIENT
  Age: 78 Year
  Sex: Female

DRUGS (3)
  1. BELSOMRA [Suspect]
     Active Substance: SUVOREXANT
     Indication: SLEEP DISORDER
     Dosage: ONE AT BED TIME
     Route: 048
     Dates: start: 20160203
  2. TIKOSYN [Interacting]
     Active Substance: DOFETILIDE
     Indication: CARDIAC DISORDER
     Dosage: 250 MICROGRAM, BID
     Route: 048
     Dates: start: 20150717
  3. BELSOMRA [Interacting]
     Active Substance: SUVOREXANT
     Dosage: AT 2 O^CLOCK LAST NIGHT, SHE GOT UP AND TOOK A SECOND TABLET
     Route: 048
     Dates: start: 20160217

REACTIONS (2)
  - Drug ineffective [Not Recovered/Not Resolved]
  - Drug interaction [Not Recovered/Not Resolved]

NARRATIVE: CASE EVENT DATE: 201602
